FAERS Safety Report 6919274-8 (Version None)
Quarter: 2010Q3

REPORT INFORMATION
  Report Type: 
  Country: None (occurrence: None)
  Receive Date: 20100810
  Receipt Date: 20100810
  Transmission Date: 20110219
  Serious: No
  Sender: FDA-Public Use
  Company Number: None

PATIENT
  Age: 63 Year
  Sex: Male

DRUGS (1)
  1. BYSTOLIC [Suspect]
     Dates: start: 20080915, end: 20080919

REACTIONS (12)
  - CHOLESTASIS [None]
  - CHOLESTATIC LIVER INJURY [None]
  - HEPATIC FIBROSIS [None]
  - HEPATIC NECROSIS [None]
  - HEPATIC STEATOSIS [None]
  - HEPATITIS [None]
  - HEPATITIS A [None]
  - HEPATITIS ACUTE [None]
  - LIVER INJURY [None]
  - MALLORY-WEISS SYNDROME [None]
  - METABOLIC SYNDROME [None]
  - MULTI-ORGAN FAILURE [None]
